FAERS Safety Report 10363329 (Version 4)
Quarter: 2014Q4

REPORT INFORMATION
  Report Type: Spontaneous
  Country: JP (occurrence: JP)
  Receive Date: 20140805
  Receipt Date: 20141125
  Transmission Date: 20150528
  Serious: Yes (Hospitalization)
  Sender: FDA-Public Use
  Company Number: PHHY2014JP095764

PATIENT
  Age: 87 Year
  Sex: Male

DRUGS (2)
  1. ZOLEDRONATE [Suspect]
     Active Substance: ZOLEDRONIC ACID
     Indication: METASTASES TO BONE
     Dosage: 4 MG, PER ADMINISTRATION
     Route: 042
     Dates: start: 201204, end: 201312
  2. DEXAMETHASONE. [Concomitant]
     Active Substance: DEXAMETHASONE
     Indication: METASTASES TO BONE
     Dosage: 0.5 MG, QD
     Route: 048
     Dates: start: 201209, end: 201312

REACTIONS (11)
  - Gingival swelling [Recovered/Resolved]
  - Exposed bone in jaw [Recovered/Resolved]
  - Bacterial infection [Recovered/Resolved]
  - Osteonecrosis of jaw [Recovering/Resolving]
  - Pain in jaw [Recovered/Resolved]
  - Purulent discharge [Recovered/Resolved]
  - Abscess bacterial [Recovered/Resolved]
  - Local swelling [Recovered/Resolved]
  - Pyrexia [Unknown]
  - Malaise [Recovered/Resolved]
  - Dyspnoea [Recovered/Resolved]

NARRATIVE: CASE EVENT DATE: 201312
